FAERS Safety Report 15930876 (Version 1)
Quarter: 2019Q1

REPORT INFORMATION
  Report Type: Spontaneous
  Country: JP (occurrence: JP)
  Receive Date: 20190207
  Receipt Date: 20190207
  Transmission Date: 20190417
  Serious: Yes (Other)
  Sender: FDA-Public Use
  Company Number: JP-SCIEGEN PHARMACEUTICALS INC-2019SCILIT00094

PATIENT

DRUGS (4)
  1. QUETIAPINE. [Suspect]
     Active Substance: QUETIAPINE
     Indication: INSOMNIA
     Dosage: 12.5 MG PER DAY
     Route: 065
  2. QUETIAPINE. [Interacting]
     Active Substance: QUETIAPINE
     Dosage: 100 MG PER DAY
     Route: 065
  3. QUETIAPINE. [Interacting]
     Active Substance: QUETIAPINE
     Dosage: 50 MG PER DAY
     Route: 065
  4. SUVOREXANT. [Interacting]
     Active Substance: SUVOREXANT
     Indication: SLEEP DISORDER
     Dosage: 15 MG/D AT BEDTIME
     Route: 065

REACTIONS (3)
  - Delirium [Recovered/Resolved]
  - Drug interaction [Recovered/Resolved]
  - Product use in unapproved indication [None]
